FAERS Safety Report 6261097-X (Version None)
Quarter: 2009Q3

REPORT INFORMATION
  Report Type: 
  Country: None (occurrence: None)
  Receive Date: 20090707
  Receipt Date: 20090625
  Transmission Date: 20100115
  Serious: Yes (Other)
  Sender: FDA-Public Use
  Company Number: 2009AP002581

PATIENT
  Age: 61 Year
  Sex: Female

DRUGS (2)
  1. DILT-CD (120 MG) [Suspect]
     Indication: HYPERTENSION
     Dosage: 120 MG; QD; PO
     Route: 048
  2. DILTIAZEM HYDROCHLORIDE [Concomitant]

REACTIONS (8)
  - ASTHENIA [None]
  - BLOOD PRESSURE INCREASED [None]
  - CHEST DISCOMFORT [None]
  - DRUG INEFFECTIVE [None]
  - DYSPNOEA [None]
  - FEELING JITTERY [None]
  - HYPERSENSITIVITY [None]
  - PALPITATIONS [None]
